FAERS Safety Report 9190204 (Version 1)
Quarter: 2013Q1

REPORT INFORMATION
  Report Type: Spontaneous
  Country: US (occurrence: US)
  Receive Date: 20130326
  Receipt Date: 20130326
  Transmission Date: 20140127
  Serious: Yes (Death)
  Sender: FDA-Public Use
  Company Number: US-MYLANLABS-2013S1006000

PATIENT
  Sex: Male

DRUGS (1)
  1. FENTANYL TRANSDERMAL SYSTEM [Suspect]
     Indication: PAIN
     Dosage: Q 72H
     Route: 062
     Dates: start: 20130301, end: 201303

REACTIONS (4)
  - Death [Fatal]
  - Hypersomnia [Recovered/Resolved]
  - Insomnia [Recovered/Resolved]
  - Expired drug administered [Recovered/Resolved]
